FAERS Safety Report 6901862-6 (Version None)
Quarter: 2010Q3

REPORT INFORMATION
  Report Type: 
  Country: None (occurrence: None)
  Receive Date: 20100803
  Receipt Date: 20080325
  Transmission Date: 20110219
  Serious: No
  Sender: FDA-Public Use
  Company Number: US-PFIZER INC-2008027368

PATIENT
  Sex: Female
  Weight: 97.727 kg

DRUGS (6)
  1. LYRICA [Suspect]
     Indication: FIBROMYALGIA
     Dates: start: 20080318
  2. LYRICA [Suspect]
     Indication: FATIGUE
  3. AMBIEN [Concomitant]
  4. XANAX [Concomitant]
  5. SOMA [Concomitant]
  6. DARVOCET [Concomitant]

REACTIONS (3)
  - DIZZINESS [None]
  - OEDEMA PERIPHERAL [None]
  - WEIGHT INCREASED [None]
